FAERS Safety Report 6193379-4 (Version None)
Quarter: 2009Q2

REPORT INFORMATION
  Report Type: 
  Country: None (occurrence: None)
  Receive Date: 20090514
  Receipt Date: 20090514
  Transmission Date: 20091009
  Serious: Yes (Hospitalization)
  Sender: FDA-Public Use
  Company Number: None

PATIENT
  Age: 88 Year
  Sex: Male

DRUGS (1)
  1. FUROSEMIDE 40 MG [Suspect]
     Indication: CARDIAC FAILURE CONGESTIVE
     Dosage: 40 MG TWICE DAILY PO
     Route: 048

REACTIONS (2)
  - ARTHRALGIA [None]
  - FALL [None]
